FAERS Safety Report 5789051-2 (Version None)
Quarter: 2008Q2

REPORT INFORMATION
  Report Type: 
  Country: None (occurrence: None)
  Receive Date: 20080626
  Receipt Date: 20080619
  Transmission Date: 20081010
  Serious: Yes (Life-Threatening, Hospitalization)
  Sender: FDA-Public Use
  Company Number: B0525977A

PATIENT
  Age: 39 Year
  Sex: Male

DRUGS (4)
  1. DEROXAT [Suspect]
     Dosage: 20MG VARIABLE DOSE
     Route: 048
     Dates: start: 20070718, end: 20080404
  2. ABILIFY [Suspect]
     Indication: DRUG USE FOR UNKNOWN INDICATION
     Dosage: 10MG VARIABLE DOSE
     Route: 048
     Dates: start: 20060216, end: 20080404
  3. RIVOTRIL [Concomitant]
     Dosage: 2MG AS REQUIRED
     Route: 048
     Dates: start: 20070321, end: 20080404
  4. DEPAKOTE [Concomitant]
     Indication: AFFECTIVE DISORDER
     Dosage: 500MG THREE TIMES PER DAY
     Route: 048
     Dates: start: 20071211, end: 20080404

REACTIONS (15)
  - AORTIC VALVE INCOMPETENCE [None]
  - ARTERIOSCLEROSIS [None]
  - CARDIO-RESPIRATORY ARREST [None]
  - CONFUSIONAL STATE [None]
  - DRUG INTERACTION [None]
  - DYSPNOEA [None]
  - EJECTION FRACTION DECREASED [None]
  - ELECTROCARDIOGRAM ST SEGMENT DEPRESSION [None]
  - LEFT VENTRICULAR HYPERTROPHY [None]
  - MITRAL VALVE INCOMPETENCE [None]
  - MYDRIASIS [None]
  - RESPIRATORY DISTRESS [None]
  - SUDDEN DEATH [None]
  - TROPONIN INCREASED [None]
  - VENTRICULAR FIBRILLATION [None]
